FAERS Safety Report 6286399-2 (Version None)
Quarter: 2009Q3

REPORT INFORMATION
  Report Type: 
  Country: None (occurrence: None)
  Receive Date: 20090728
  Receipt Date: 20090721
  Transmission Date: 20100115
  Serious: Yes (Hospitalization)
  Sender: FDA-Public Use
  Company Number: JP-GENENTECH-287372

PATIENT
  Sex: Female

DRUGS (23)
  1. RITUXAN [Suspect]
     Indication: NON-HODGKIN'S LYMPHOMA
     Dosage: 375 MG/M2, Q3W
     Route: 042
     Dates: start: 20090304
  2. CYCLOPHOSPHAMIDE [Suspect]
     Indication: NON-HODGKIN'S LYMPHOMA
     Dosage: 750 MG/M2, Q3W
     Route: 042
     Dates: start: 20090305, end: 20090305
  3. CYCLOPHOSPHAMIDE [Suspect]
     Dosage: 600 MG/M2, UNK
     Route: 042
     Dates: start: 20090326, end: 20090326
  4. CYCLOPHOSPHAMIDE [Suspect]
     Dosage: 750 MG/M2, UNK
     Route: 042
     Dates: start: 20090417, end: 20090417
  5. CYCLOPHOSPHAMIDE [Suspect]
     Dosage: 450 MG/M2, UNK
     Route: 042
     Dates: start: 20090529, end: 20090529
  6. CYCLOPHOSPHAMIDE [Suspect]
     Dosage: 750 MG/M2, UNK
     Route: 042
     Dates: start: 20090619, end: 20090619
  7. DOXORUBICIN HCL [Suspect]
     Indication: NON-HODGKIN'S LYMPHOMA
     Dosage: 50 MG/M2, Q3W
     Route: 042
     Dates: start: 20090305, end: 20090305
  8. DOXORUBICIN HCL [Suspect]
     Dosage: 40 MG/M2, UNK
     Dates: start: 20090326, end: 20090326
  9. DOXORUBICIN HCL [Suspect]
     Dosage: 50 MG/M2, UNK
     Route: 042
     Dates: start: 20090417
  10. DOXORUBICIN HCL [Suspect]
     Dosage: 30 MG/M2, UNK
     Route: 042
     Dates: start: 20090529, end: 20090529
  11. DOXORUBICIN HCL [Suspect]
     Dosage: 50 MG/M2, UNK
     Route: 042
     Dates: start: 20090619, end: 20090619
  12. VINCRISTINE SULFATE [Suspect]
     Indication: NON-HODGKIN'S LYMPHOMA
     Dosage: 2 MG/M2, Q3W
     Route: 042
     Dates: start: 20090305
  13. PREDNISOLONE [Suspect]
     Indication: NON-HODGKIN'S LYMPHOMA
     Dosage: 100 MG/M2, Q3W
     Route: 048
     Dates: start: 20090305
  14. ACETAMINOPHEN [Concomitant]
     Indication: PREMEDICATION
     Dosage: UNK
     Dates: start: 20090304
  15. CHLORPHENIRAMINE MALEATE [Concomitant]
     Indication: PREMEDICATION
     Dosage: UNK
     Dates: start: 20090304
  16. MELOXICAM [Concomitant]
     Indication: PAIN
     Dosage: 10 MG, QD
     Route: 048
     Dates: start: 20090529
  17. LANSOPRAZOLE [Concomitant]
     Indication: DRUG USE FOR UNKNOWN INDICATION
     Dosage: 30 MG, QD
     Route: 048
     Dates: start: 20090306
  18. TEPRENONE [Concomitant]
     Indication: GASTRITIS
     Dosage: 150 MG, QD
     Route: 048
     Dates: start: 20090310
  19. OXYCONTIN [Concomitant]
     Indication: PAIN
     Dosage: 10 MG, QD
     Route: 048
     Dates: start: 20090604
  20. MOSAPRIDE CITRATE [Concomitant]
     Indication: DRUG USE FOR UNKNOWN INDICATION
     Dosage: 15 MG, QD
     Route: 048
     Dates: start: 20090615
  21. WARFARIN SODIUM [Concomitant]
     Indication: THROMBOSIS
     Dosage: 1.5 MG, QD
     Route: 048
     Dates: start: 20090531
  22. ALPRAZOLAM [Concomitant]
     Indication: DRUG USE FOR UNKNOWN INDICATION
     Dosage: 0.2 MG, QD
     Route: 048
     Dates: start: 20090101
  23. ETHYL LOFLAZEPATE [Concomitant]
     Indication: NAUSEA
     Dosage: 2 MG, QD
     Route: 048
     Dates: start: 20090627

REACTIONS (1)
  - FEBRILE NEUTROPENIA [None]
